FAERS Safety Report 6994330-7 (Version None)
Quarter: 2010Q3

REPORT INFORMATION
  Report Type: 
  Country: None (occurrence: None)
  Receive Date: 20100917
  Receipt Date: 20100907
  Transmission Date: 20110219
  Serious: Yes (Other)
  Sender: FDA-Public Use
  Company Number: US-PFIZER INC-2010080351

PATIENT
  Sex: Female
  Weight: 113.39 kg

DRUGS (18)
  1. NEURONTIN [Suspect]
     Indication: FIBROMYALGIA
     Dosage: 900 MG, 2X/DAY
     Dates: start: 20100701
  2. NEURONTIN [Suspect]
     Dosage: 900 MG, 3X/DAY
     Dates: start: 20100722
  3. METFORMIN [Concomitant]
     Indication: DIABETES MELLITUS
     Dosage: 1000 MG, UNK
  4. ACETYLSALICYLIC ACID [Concomitant]
     Dosage: UNK
  5. LOPRESSOR [Concomitant]
     Dosage: UNK
  6. DIGOXIN [Concomitant]
     Dosage: UNK
  7. VERAPAMIL [Concomitant]
     Dosage: UNK
  8. IMDUR [Concomitant]
     Dosage: UNK
  9. PROZAC [Concomitant]
     Dosage: UNK
  10. LOVASTATIN [Concomitant]
     Dosage: UNK
  11. FUROSEMIDE [Concomitant]
     Dosage: UNK
  12. NITROGLYCERIN [Concomitant]
     Dosage: UNK
  13. ACCOLATE [Concomitant]
     Dosage: UNK
  14. FLUCONAZOLE [Concomitant]
     Indication: FUNGAL INFECTION
  15. ATROVENT [Concomitant]
     Indication: ASTHMA
     Dosage: UNK
     Route: 055
  16. ALBUTEROL [Concomitant]
     Indication: ASTHMA
     Dosage: UNK
     Route: 055
  17. SPIRIVA [Concomitant]
     Indication: ASTHMA
     Dosage: UNK
     Route: 055
  18. IMMUNOGLOBULIN G HUMAN [Concomitant]
     Indication: IMMUNOGLOBULINS DECREASED
     Dosage: FREQUENCY: ONCE MONTHLY,
     Route: 058

REACTIONS (7)
  - CONTUSION [None]
  - DIZZINESS [None]
  - FALL [None]
  - MUSCULAR WEAKNESS [None]
  - NYSTAGMUS [None]
  - PAIN [None]
  - TREMOR [None]
